FAERS Safety Report 25890391 (Version 1)
Quarter: 2025Q4

REPORT INFORMATION
  Report Type: Report from Study
  Country: GB (occurrence: GB)
  Receive Date: 20251007
  Receipt Date: 20251007
  Transmission Date: 20260118
  Serious: Yes (Other)
  Sender: ABBVIE
  Company Number: GB-ABBVIE-6489851

PATIENT
  Sex: Female

DRUGS (1)
  1. SKYRIZI [Suspect]
     Active Substance: RISANKIZUMAB-RZAA
     Indication: Psoriasis
     Dosage: SKYRIZI (RISANKIZUMAB) 150MG PEN PK1
     Route: 058
     Dates: start: 20220517

REACTIONS (3)
  - Neoplasm [Unknown]
  - Mass [Unknown]
  - Diabetes mellitus [Unknown]
